FAERS Safety Report 14394788 (Version 9)
Quarter: 2022Q4

REPORT INFORMATION
  Report Type: Spontaneous
  Country: BE (occurrence: BE)
  Receive Date: 20180116
  Receipt Date: 20221123
  Transmission Date: 20230113
  Serious: Yes (Hospitalization, Other)
  Sender: FDA-Public Use
  Company Number: BE-PFIZER INC-2017526791

PATIENT
  Age: 59 Year
  Sex: Female

DRUGS (10)
  1. METHYLPREDNISOLONE [Suspect]
     Active Substance: METHYLPREDNISOLONE
     Dosage: 24 MG, 2X/DAY
  2. CISPLATIN [Concomitant]
     Active Substance: CISPLATIN
     Indication: Lung adenocarcinoma
     Dosage: 75 MG/M2, CYCLIC
  3. PEMETREXED [Concomitant]
     Active Substance: PEMETREXED
     Indication: Lung adenocarcinoma
     Dosage: 500 MG/ M^2 (MAINTENANCE THERAPY)
  4. ACETAMINOPHEN [Concomitant]
     Active Substance: ACETAMINOPHEN
     Indication: Headache
     Dosage: UNK
  5. METOCLOPRAMIDE [Concomitant]
     Active Substance: METOCLOPRAMIDE
     Indication: Supplementation therapy
     Dosage: UNK, AS NEEDED, (IF NEEDED)
  6. ASPIRIN [Concomitant]
     Active Substance: ASPIRIN
     Dosage: 80 MG, UNK (CHRONIC }1 YEAR BEFORE PRES)
  7. PANTOPRAZOLE [Concomitant]
     Active Substance: PANTOPRAZOLE
     Dosage: 40 MG, UNK (CHRONIC }1 YEAR BEFORE PRES)
  8. MIRTAZAPINE [Concomitant]
     Active Substance: MIRTAZAPINE
     Indication: Epilepsy
     Dosage: 15 MG, UNK (CHRONIC }1 YEAR BEFORE PRES)
  9. TRAMADOL [Concomitant]
     Active Substance: TRAMADOL
     Dosage: 150 MG, UNK (SLOW RELEASE, (CHRONIC }1 YEAR BEFORE PRES)
  10. LORMETAZEPAM [Concomitant]
     Active Substance: LORMETAZEPAM
     Indication: Epilepsy
     Dosage: 2.5 MG, UNK

REACTIONS (2)
  - Hypertension [Recovered/Resolved]
  - Leukocytosis [Unknown]
